FAERS Safety Report 9702323 (Version 2)
Quarter: 2013Q4

REPORT INFORMATION
  Report Type: Report from Study
  Country: BR (occurrence: BR)
  Receive Date: 20131121
  Receipt Date: 20131121
  Transmission Date: 20140711
  Serious: Yes (Other)
  Sender: FDA-Public Use
  Company Number: PHHY2013BR117772

PATIENT
  Age: 84 Year
  Sex: Female
  Weight: 50 kg

DRUGS (8)
  1. EXELON PATCH [Suspect]
     Indication: DEMENTIA ALZHEIMER^S TYPE
     Dosage: 4.6 MG, DAILY (9 MG/5 CM2)
     Route: 062
     Dates: start: 20130912, end: 20131012
  2. EXELON PATCH [Suspect]
     Dosage: 9.5 MG, DAILY (18 MG/10 CM2)
     Route: 062
     Dates: start: 20131013
  3. RISPERIDONE [Suspect]
     Dosage: 0.5 DF, UNK
     Dates: start: 20130912
  4. SINVASTATIN (SIMVASTATIN) [Suspect]
     Dosage: UNK UKN, UNK
  5. OMEPRAZOLE [Concomitant]
     Dosage: UNK UKN, UNK
  6. LOSARTAN [Concomitant]
     Dosage: UNK UKN, UNK
  7. ASPIRINA [Concomitant]
     Dosage: UNK UKN, UNK
  8. DIURETICS [Concomitant]
     Dosage: UNK UKN, UNK

REACTIONS (7)
  - Dementia [Unknown]
  - Amnesia [Unknown]
  - Malnutrition [Unknown]
  - Head banging [Unknown]
  - Posture abnormal [Unknown]
  - Weight increased [Unknown]
  - Somnolence [Recovered/Resolved]
